FAERS Safety Report 4836814-3 (Version None)
Quarter: 2005Q4

REPORT INFORMATION
  Report Type: 
  Country: None (occurrence: None)
  Receive Date: 20051123
  Receipt Date: 20051004
  Transmission Date: 20060501
  Serious: Yes (Death, Hospitalization, Disabling)
  Sender: FDA-Public Use
  Company Number: US-MERCK-0510USA03072

PATIENT
  Age: 58 Year
  Sex: Male
  Weight: 75 kg

DRUGS (15)
  1. VIOXX [Suspect]
     Indication: RHEUMATOID ARTHRITIS
     Route: 048
     Dates: start: 20021020, end: 20030101
  2. VIOXX [Suspect]
     Route: 048
     Dates: start: 19990101, end: 20020926
  3. MINOCYCLINE [Concomitant]
     Route: 065
  4. PREDNISONE [Concomitant]
     Route: 065
  5. HYDROXYCHLOROQUINE SULFATE [Concomitant]
     Route: 065
  6. METOPROLOL TARTRATE [Concomitant]
     Route: 065
  7. MICARDIS [Concomitant]
     Route: 065
  8. FOSAMAX [Concomitant]
     Route: 048
  9. ZANTAC [Concomitant]
     Route: 065
  10. ACETAMINOPHEN AND HYDROCODONE BITARTRATE [Concomitant]
     Route: 065
  11. ACETAMINOPHEN AND OXYCODONE HYDROCHLORIDE [Concomitant]
     Route: 065
  12. CEPHALEXIN [Concomitant]
     Route: 065
  13. ASPIRIN [Concomitant]
     Route: 065
  14. PLAQUENIL [Concomitant]
     Route: 065
  15. RANITIDINE [Concomitant]
     Route: 065

REACTIONS (28)
  - ACUTE MYOCARDIAL INFARCTION [None]
  - ANAEMIA [None]
  - ANOREXIA [None]
  - AORTIC ANEURYSM [None]
  - ARTHRITIS [None]
  - BRADYCARDIA [None]
  - CARDIAC DISORDER [None]
  - CHRONIC OBSTRUCTIVE PULMONARY DISEASE [None]
  - CORONARY ARTERY DISEASE [None]
  - FRACTURE [None]
  - LUNG ADENOCARCINOMA [None]
  - LUNG DISORDER [None]
  - LUNG INFILTRATION [None]
  - LUNG NEOPLASM [None]
  - MEDICAL DEVICE COMPLICATION [None]
  - MUSCULOSKELETAL CHEST PAIN [None]
  - MYOCARDIAL INFARCTION [None]
  - NERVOUSNESS [None]
  - OEDEMA PERIPHERAL [None]
  - PERIPHERAL VASCULAR DISORDER [None]
  - PLEURAL EFFUSION [None]
  - PNEUMONIA [None]
  - PNEUMOTHORAX [None]
  - POST PROCEDURAL COMPLICATION [None]
  - RENAL CYST [None]
  - SKIN HYPERPIGMENTATION [None]
  - SYNOVITIS [None]
  - THORACIC CAVITY DRAINAGE TEST ABNORMAL [None]
